FAERS Safety Report 7213058-1 (Version None)
Quarter: 2011Q1

REPORT INFORMATION
  Report Type: 
  Country: None (occurrence: None)
  Receive Date: 20110106
  Receipt Date: 20101229
  Transmission Date: 20110831
  Serious: Yes (Other)
  Sender: FDA-Public Use
  Company Number: B0692000A

PATIENT
  Sex: Female

DRUGS (2)
  1. AUGMENTIN '125' [Suspect]
     Dates: start: 20101119, end: 20101122
  2. ERDOSTEINE [Concomitant]
     Indication: COUGH
     Dosage: 300MG PER DAY
     Dates: start: 20101119, end: 20101122

REACTIONS (3)
  - RASH [None]
  - DYSPHONIA [None]
  - PHARYNGEAL OEDEMA [None]
